FAERS Safety Report 14483399 (Version 5)
Quarter: 2018Q3

REPORT INFORMATION
  Report Type: Report from Study
  Country: US (occurrence: US)
  Receive Date: 20180204
  Receipt Date: 20180725
  Transmission Date: 20181010
  Serious: Yes (Hospitalization)
  Sender: FDA-Public Use
  Company Number: US-ALEXION PHARMACEUTICALS INC.-A201801044

PATIENT
  Age: 23 Year
  Sex: Male

DRUGS (24)
  1. BENADRYL [Concomitant]
     Active Substance: DIPHENHYDRAMINE HYDROCHLORIDE
     Indication: INSOMNIA
     Dosage: 25 MG, Q6H PRN
     Route: 048
     Dates: end: 20171130
  2. MICRO?K [Concomitant]
     Active Substance: POTASSIUM CHLORIDE
     Indication: PRODUCT USED FOR UNKNOWN INDICATION
     Dosage: 40 MEQ, BID
     Route: 048
     Dates: start: 20171122, end: 20171128
  3. SYNTHROID [Concomitant]
     Active Substance: LEVOTHYROXINE SODIUM
     Indication: HYPOTHYROIDISM
     Dosage: 75 ?G, QD AM
     Route: 048
  4. LASIX [Concomitant]
     Active Substance: FUROSEMIDE
     Indication: PRODUCT USED FOR UNKNOWN INDICATION
     Dosage: 80 MG, BID
     Route: 048
     Dates: start: 20171122, end: 20171128
  5. HYDROCORTISONE. [Concomitant]
     Active Substance: HYDROCORTISONE
     Indication: PRODUCT USED FOR UNKNOWN INDICATION
     Dosage: 25 MG, QD
     Route: 048
  6. BUPAP [Concomitant]
     Active Substance: ACETAMINOPHEN\BUTALBITAL
     Indication: HEADACHE
     Dosage: 375 MG, Q6H
     Route: 048
     Dates: start: 20171122, end: 20171128
  7. PHOSLO [Concomitant]
     Active Substance: CALCIUM ACETATE
     Indication: PRODUCT USED FOR UNKNOWN INDICATION
     Dosage: 667 MG, TID WITH MEALS
     Route: 048
     Dates: start: 20171122, end: 20171128
  8. COREG [Concomitant]
     Active Substance: CARVEDILOL
     Indication: HYPERTENSION
     Dosage: 12.5 MG, BID WITH MEALS
     Route: 048
     Dates: start: 20171122, end: 20171128
  9. PROTONIX [Concomitant]
     Active Substance: PANTOPRAZOLE SODIUM
     Indication: PRODUCT USED FOR UNKNOWN INDICATION
     Dosage: 40 MG, QD
     Route: 048
     Dates: start: 20171123, end: 20171128
  10. FLONASE [Concomitant]
     Active Substance: FLUTICASONE PROPIONATE
     Indication: PRODUCT USED FOR UNKNOWN INDICATION
     Dosage: 100 ?G, QD
     Route: 045
     Dates: start: 20171123, end: 20171128
  11. SOLIRIS [Suspect]
     Active Substance: ECULIZUMAB
     Dosage: UNK
     Route: 065
     Dates: start: 20160623
  12. FLUDROCORTISONE [Concomitant]
     Active Substance: FLUDROCORTISONE
     Indication: ADDISON^S DISEASE
     Dosage: 0.2 MG, QD
     Route: 048
     Dates: start: 20171123, end: 20171128
  13. RITUXIMAB. [Concomitant]
     Active Substance: RITUXIMAB
     Indication: GENERALISED OEDEMA
     Dosage: UNK
     Route: 065
     Dates: end: 20171105
  14. ARANESP [Concomitant]
     Active Substance: DARBEPOETIN ALFA
     Dosage: 100 ?G, QW
     Route: 058
     Dates: start: 20171124, end: 20171128
  15. DELTASONE [Concomitant]
     Active Substance: PREDNISONE
     Indication: ADDISON^S DISEASE
  16. NORCO [Concomitant]
     Active Substance: ACETAMINOPHEN\HYDROCODONE BITARTRATE
     Indication: PAIN
     Dosage: 325 MG, Q6H PRN
     Route: 048
     Dates: end: 20171128
  17. CARAFATE [Concomitant]
     Active Substance: SUCRALFATE
     Indication: DYSPEPSIA
     Dosage: 10 ML, QID
     Route: 048
     Dates: start: 20171122, end: 20171128
  18. SOLIRIS [Suspect]
     Active Substance: ECULIZUMAB
     Indication: PAROXYSMAL NOCTURNAL HAEMOGLOBINURIA
     Dosage: UNK
     Route: 065
     Dates: start: 20160526
  19. SOLIRIS [Suspect]
     Active Substance: ECULIZUMAB
     Dosage: 900 MG, Q2W
     Route: 042
     Dates: start: 20170929
  20. ARANESP [Concomitant]
     Active Substance: DARBEPOETIN ALFA
     Indication: NORMOCYTIC ANAEMIA
     Dosage: 100 ?G, QW
     Route: 058
     Dates: start: 20171027
  21. DELTASONE [Concomitant]
     Active Substance: PREDNISONE
     Indication: GENERALISED OEDEMA
     Dosage: 10 MG, QD
     Route: 048
  22. VITAMIN D3 [Concomitant]
     Active Substance: CHOLECALCIFEROL
     Indication: PRODUCT USED FOR UNKNOWN INDICATION
     Dosage: 5000 IU, QD
     Route: 048
  23. TUMS [Concomitant]
     Active Substance: CALCIUM CARBONATE
     Indication: HYPOCALCAEMIA
     Dosage: 500 MG, TID
     Route: 048
     Dates: start: 20171122, end: 20171128
  24. ZAROXOLYN [Concomitant]
     Active Substance: METOLAZONE
     Indication: HYPERVOLAEMIA
     Dosage: 5 MG, QD
     Route: 048
     Dates: start: 20171122, end: 20171128

REACTIONS (7)
  - Meningitis enterococcal [Recovered/Resolved]
  - Nephrotic syndrome [Recovered/Resolved]
  - Hypomagnesaemia [Recovered/Resolved]
  - Paroxysmal nocturnal haemoglobinuria [Recovered/Resolved]
  - Acute kidney injury [Recovered/Resolved]
  - Pneumonia [Recovered/Resolved]
  - Hypokalaemia [Recovered/Resolved]

NARRATIVE: CASE EVENT DATE: 20171007
